FAERS Safety Report 24868547 (Version 1)
Quarter: 2025Q1

REPORT INFORMATION
  Report Type: Spontaneous
  Country: US (occurrence: US)
  Receive Date: 20250121
  Receipt Date: 20250121
  Transmission Date: 20250409
  Serious: Yes (Other)
  Sender: MYLAN
  Company Number: US-MYLANLABS-2025M1004441

PATIENT
  Age: 19 Year
  Sex: Female

DRUGS (9)
  1. GEODON [Suspect]
     Active Substance: ZIPRASIDONE HYDROCHLORIDE\ZIPRASIDONE MESYLATE
     Indication: Product used for unknown indication
     Route: 065
  2. REXULTI [Suspect]
     Active Substance: BREXPIPRAZOLE
     Indication: Bipolar I disorder
     Dosage: 0.5 MILLIGRAM, QD (AT BED TIME)
     Route: 048
     Dates: start: 20240905
  3. REXULTI [Suspect]
     Active Substance: BREXPIPRAZOLE
     Dosage: 0.75 MILLIGRAM, QD (AT BED TIME)
     Route: 048
  4. REXULTI [Suspect]
     Active Substance: BREXPIPRAZOLE
     Dosage: 1 MILLIGRAM, QD (AT BED TIME)
     Route: 048
  5. REXULTI [Suspect]
     Active Substance: BREXPIPRAZOLE
     Dosage: 1.5 MILLIGRAM, QD (AT BED TIME)
     Route: 048
     Dates: start: 20240929, end: 20241005
  6. ABILIFY [Suspect]
     Active Substance: ARIPIPRAZOLE
     Indication: Product used for unknown indication
     Route: 065
     Dates: start: 2023
  7. VRAYLAR [Suspect]
     Active Substance: CARIPRAZINE
     Indication: Product used for unknown indication
     Route: 065
  8. VITAMIN C [Concomitant]
     Active Substance: ASCORBIC ACID
     Route: 065
  9. PROBIOTICS NOS [Concomitant]
     Active Substance: PROBIOTICS NOS
     Route: 065

REACTIONS (14)
  - Loss of consciousness [Recovered/Resolved]
  - Self-injurious ideation [Recovered/Resolved]
  - Anger [Recovered/Resolved]
  - Dehydration [Recovered/Resolved]
  - Irritability [Recovered/Resolved]
  - Abdominal pain upper [Not Recovered/Not Resolved]
  - Diarrhoea [Recovered/Resolved]
  - Neuroleptic malignant syndrome [Recovered/Resolved]
  - Manic symptom [Recovered/Resolved]
  - Weight decreased [Recovered/Resolved]
  - Nausea [Recovered/Resolved]
  - Akathisia [Recovered/Resolved]
  - Extrapyramidal disorder [Recovered/Resolved]
  - Product use in unapproved indication [Unknown]

NARRATIVE: CASE EVENT DATE: 20240905
